FAERS Safety Report 9110819 (Version 1)
Quarter: 2013Q1

REPORT INFORMATION
  Report Type: Spontaneous
  Country: US (occurrence: US)
  Receive Date: 20130219
  Receipt Date: 20130219
  Transmission Date: 20140127
  Serious: No
  Sender: FDA-Public Use
  Company Number: US-BRISTOL-MYERS SQUIBB COMPANY-16970956

PATIENT
  Age: 54 Year
  Sex: Female

DRUGS (1)
  1. ORENCIA [Suspect]
     Dosage: LAST INFUSION:  04SEP2012?SUBCUTANEOUS ALSO.
     Route: 042
     Dates: start: 20120821

REACTIONS (2)
  - Nausea [Unknown]
  - Upper-airway cough syndrome [Unknown]
